FAERS Safety Report 5661452-2 (Version None)
Quarter: 2008Q1

REPORT INFORMATION
  Report Type: 
  Country: None (occurrence: None)
  Receive Date: 20080311
  Receipt Date: 20080227
  Transmission Date: 20080703
  Serious: Yes (Hospitalization)
  Sender: FDA-Public Use
  Company Number: CH-GENENTECH-255469

PATIENT
  Sex: Male
  Weight: 60 kg

DRUGS (3)
  1. AVASTIN [Suspect]
     Indication: COLON CANCER METASTATIC
     Dosage: 7.5 MG/KG, UNKNOWN
     Route: 042
     Dates: start: 20071122, end: 20080107
  2. CAPECITABINE [Concomitant]
     Indication: DRUG USE FOR UNKNOWN INDICATION
     Dates: start: 20071122, end: 20080107
  3. OXALIPLATIN [Concomitant]
     Indication: DRUG USE FOR UNKNOWN INDICATION
     Dates: start: 20071122, end: 20080107

REACTIONS (4)
  - ASCITES [None]
  - GASTROINTESTINAL PERFORATION [None]
  - NEOPLASM PROGRESSION [None]
  - OEDEMA [None]
